FAERS Safety Report 10455384 (Version 2)
Quarter: 2014Q3

REPORT INFORMATION
  Report Type: Spontaneous
  Country: FR (occurrence: FR)
  Receive Date: 20140916
  Receipt Date: 20140916
  Transmission Date: 20150326
  Serious: Yes (Hospitalization)
  Sender: FDA-Public Use
  Company Number: FR-BRISTOL-MYERS SQUIBB COMPANY-21246970

PATIENT
  Age: 80 Year
  Sex: Female

DRUGS (7)
  1. ROCEPHINE [Suspect]
     Active Substance: CEFTRIAXONE SODIUM
     Route: 042
     Dates: start: 20140716
  2. HEMIGOXINE NATIVELLE [Suspect]
     Active Substance: DIGOXIN
     Route: 048
     Dates: start: 20140720, end: 20140722
  3. DOLIPRANE [Suspect]
     Active Substance: ACETAMINOPHEN
     Dates: end: 20140722
  4. ALDACTONE [Suspect]
     Active Substance: SPIRONOLACTONE
     Route: 048
     Dates: end: 20140722
  5. BROMAZEPAM [Suspect]
     Active Substance: BROMAZEPAM
     Route: 048
     Dates: start: 20140719, end: 20140722
  6. ELIQUIS [Suspect]
     Active Substance: APIXABAN
     Dosage: TABLETS?TOTAL NO OF TABS:2
     Route: 048
     Dates: start: 20140720, end: 20140721
  7. PROPYLTHIOURACIL. [Suspect]
     Active Substance: PROPYLTHIOURACIL
     Indication: HYPERTHYROIDISM
     Route: 048
     Dates: start: 20140603, end: 20140722

REACTIONS (4)
  - Aspartate aminotransferase increased [Unknown]
  - Gamma-glutamyltransferase increased [Unknown]
  - Alanine aminotransferase increased [Unknown]
  - Hepatocellular injury [Recovering/Resolving]

NARRATIVE: CASE EVENT DATE: 20140720
